FAERS Safety Report 19507122 (Version 1)
Quarter: 2021Q3

REPORT INFORMATION
  Report Type: Spontaneous
  Country: FR (occurrence: FR)
  Receive Date: 20210708
  Receipt Date: 20210708
  Transmission Date: 20211014
  Serious: Yes (Other)
  Sender: FDA-Public Use
  Company Number: FR-PFIZER INC-2021758379

PATIENT
  Age: 33 Year
  Sex: Female
  Weight: 112 kg

DRUGS (1)
  1. CISATRACURIUM PFIZER [Suspect]
     Active Substance: CISATRACURIUM BESYLATE
     Indication: COVID-19 IMMUNISATION
     Dosage: D1
     Route: 030
     Dates: start: 20210505, end: 20210505

REACTIONS (5)
  - Disturbance in attention [Recovered/Resolved]
  - Paraesthesia [Not Recovered/Not Resolved]
  - Muscular weakness [Recovered/Resolved]
  - Bed rest [Recovered/Resolved]
  - Off label use [Unknown]

NARRATIVE: CASE EVENT DATE: 20210506
